FAERS Safety Report 7166404-1 (Version None)
Quarter: 2010Q4

REPORT INFORMATION
  Report Type: 
  Country: None (occurrence: None)
  Receive Date: 20101216
  Receipt Date: 20100909
  Transmission Date: 20110411
  Serious: No
  Sender: FDA-Public Use
  Company Number: US-ABBOTT-10P-163-0670722-00

PATIENT
  Age: 48 Year
  Sex: Female

DRUGS (4)
  1. TRILIPIX [Suspect]
     Indication: BLOOD CHOLESTEROL INCREASED
     Dates: start: 20100707, end: 20100801
  2. TRILIPIX [Suspect]
     Indication: BLOOD TRIGLYCERIDES INCREASED
  3. IRON [Concomitant]
     Indication: ANAEMIA
     Dates: start: 20100707
  4. COLACE [Concomitant]
     Indication: CONSTIPATION
     Dates: start: 20100707

REACTIONS (2)
  - PRURITUS [None]
  - RASH [None]
